FAERS Safety Report 19239411 (Version 1)
Quarter: 2021Q2

REPORT INFORMATION
  Report Type: Spontaneous
  Country: ES (occurrence: ES)
  Receive Date: 20210510
  Receipt Date: 20210510
  Transmission Date: 20210717
  Serious: Yes (Hospitalization)
  Sender: FDA-Public Use
  Company Number: ES-TEVA-2021-ES-1908406

PATIENT
  Age: 67 Year
  Sex: Male

DRUGS (1)
  1. VORICONAZOL TEVA 200 MG COMPRIMIDOS RECUBIERTOS CON PELICULA EFG , 28 [Suspect]
     Active Substance: VORICONAZOLE
     Indication: ASPERGILLUS INFECTION
     Dosage: 200 MG C / 12 H
     Route: 048
     Dates: start: 20210217, end: 20210413

REACTIONS (1)
  - Hypertransaminasaemia [Recovering/Resolving]

NARRATIVE: CASE EVENT DATE: 20210412
